FAERS Safety Report 4421310-8 (Version None)
Quarter: 2004Q3

REPORT INFORMATION
  Report Type: 
  Country: None (occurrence: None)
  Receive Date: 20040707
  Receipt Date: 20040413
  Transmission Date: 20050211
  Serious: No
  Sender: FDA-Public Use
  Company Number: A03200400523

PATIENT
  Age: 56 Year
  Sex: Female
  Weight: 117.9352 kg

DRUGS (2)
  1. ARIXTRA [Suspect]
     Indication: KNEE ARTHROPLASTY
     Dosage: 1 QD - SUBCUTANEOUS
     Route: 058
     Dates: start: 20040212, end: 20040220
  2. ARIXTRA [Suspect]
     Indication: THROMBOSIS PROPHYLAXIS
     Dosage: 1 QD - SUBCUTANEOUS
     Route: 058
     Dates: start: 20040212, end: 20040220

REACTIONS (5)
  - HEADACHE [None]
  - NAUSEA [None]
  - PRURITUS [None]
  - RASH MORBILLIFORM [None]
  - VOMITING [None]
